FAERS Safety Report 7259094-0 (Version None)
Quarter: 2011Q1

REPORT INFORMATION
  Report Type: 
  Country: None (occurrence: None)
  Receive Date: 20110129
  Receipt Date: 20100812
  Transmission Date: 20110831
  Serious: No
  Sender: FDA-Public Use
  Company Number: US-ABBOTT-10P-163-0663518-00

PATIENT
  Age: 58 Year
  Sex: Male

DRUGS (12)
  1. HUMIRA [Suspect]
     Indication: PSORIASIS
     Dates: start: 20100701
  2. SINGULAIR [Concomitant]
     Indication: ASTHMA
  3. NEXIUM [Concomitant]
     Indication: PRODUCT USED FOR UNKNOWN INDICATION
  4. ALLEGRA [Concomitant]
     Indication: HYPERSENSITIVITY
  5. ATARAX [Concomitant]
     Indication: PRURITUS
  6. ATARAX [Concomitant]
     Indication: INSOMNIA
  7. KLONOPIN [Concomitant]
     Indication: ANXIETY
  8. PAXIL [Concomitant]
     Indication: ANXIETY
  9. ZOCOR [Concomitant]
     Indication: BLOOD CHOLESTEROL INCREASED
  10. DEPAKOTE [Concomitant]
     Indication: ANXIETY
  11. RELAFEN [Concomitant]
     Indication: PAIN
  12. AMBIEN [Concomitant]
     Indication: PRODUCT USED FOR UNKNOWN INDICATION

REACTIONS (1)
  - INJECTION SITE ERYTHEMA [None]
